FAERS Safety Report 11722032 (Version 2)
Quarter: 2015Q4

REPORT INFORMATION
  Report Type: Spontaneous
  Country: US (occurrence: US)
  Receive Date: 20151111
  Receipt Date: 20151209
  Transmission Date: 20160304
  Serious: Yes (Death, Hospitalization)
  Sender: FDA-Public Use
  Company Number: US-JNJFOC-20151003816

PATIENT
  Age: 79 Year
  Sex: Female

DRUGS (2)
  1. XARELTO [Suspect]
     Active Substance: RIVAROXABAN
     Indication: ATRIAL FIBRILLATION
     Dosage: VARYING DOSES OF 10MG, 15MG AND 20 MG ONCE TO TWICE DAILY.
     Route: 048
     Dates: start: 20130813, end: 20131125
  2. XARELTO [Suspect]
     Active Substance: RIVAROXABAN
     Indication: CEREBROVASCULAR ACCIDENT PROPHYLAXIS
     Dosage: VARYING DOSES OF 10MG, 15MG AND 20 MG ONCE TO TWICE DAILY.
     Route: 048
     Dates: start: 20130813, end: 20131125

REACTIONS (3)
  - Respiratory failure [Fatal]
  - Internal haemorrhage [Unknown]
  - Sepsis [Fatal]

NARRATIVE: CASE EVENT DATE: 20131106
